FAERS Safety Report 7776938 (Version 4)
Quarter: 2012Q4

REPORT INFORMATION
  Report Type: 
  Country: US (occurrence: US)
  Receive Date: 20110127
  Receipt Date: 20121012
  Transmission Date: 20130627
  Serious: Yes (Hospitalization, Other)
  Sender: FDA-Public Use
  Company Number: US-ASTRAZENECA-2010SE56586

PATIENT
  Age: 85 Year
  Sex: Male

DRUGS (2)
  1. NEXIUM [Suspect]
     Route: 048
     Dates: start: 1987
  2. PRILOSEC [Suspect]
     Route: 048
     Dates: start: 1987

REACTIONS (9)
  - Abasia [Unknown]
  - Monoparesis [Unknown]
  - Nerve compression [Unknown]
  - Cataract [Unknown]
  - Eye disorder [Unknown]
  - Spinal compression fracture [Unknown]
  - Aphagia [Unknown]
  - Weight decreased [Unknown]
  - Adverse event [Unknown]
